FAERS Safety Report 19909459 (Version 1)
Quarter: 2021Q4

REPORT INFORMATION
  Report Type: Spontaneous
  Country: US (occurrence: US)
  Receive Date: 20211001
  Receipt Date: 20211001
  Transmission Date: 20220304
  Serious: No
  Sender: FDA-Public Use
  Company Number: US-AMARIN PHARMA, INC.-2021AMR000379

PATIENT
  Sex: Male

DRUGS (4)
  1. VASCEPA [Suspect]
     Active Substance: ICOSAPENT ETHYL
     Indication: Blood triglycerides increased
     Route: 048
     Dates: start: 2019, end: 20210510
  2. PROGRAF [Concomitant]
     Active Substance: TACROLIMUS
     Indication: Prophylaxis against transplant rejection
  3. COREG [Concomitant]
     Active Substance: CARVEDILOL
     Indication: Blood pressure abnormal
  4. LOSARTAN [Concomitant]
     Active Substance: LOSARTAN
     Indication: Blood pressure abnormal

REACTIONS (6)
  - Nausea [Recovered/Resolved]
  - Retching [Recovered/Resolved]
  - Therapy interrupted [Recovered/Resolved]
  - Product physical issue [Unknown]
  - Product adhesion issue [Unknown]
  - Product odour abnormal [Unknown]

NARRATIVE: CASE EVENT DATE: 20210503
